FAERS Safety Report 10052585 (Version 3)
Quarter: 2014Q2

REPORT INFORMATION
  Report Type: Spontaneous
  Country: US (occurrence: None)
  Receive Date: 20140331
  Receipt Date: 20140425
  Transmission Date: 20141212
  Serious: Yes (Hospitalization)
  Sender: FDA-Public Use
  Company Number: UTC-046400

PATIENT
  Age: 66 Year
  Sex: Male
  Weight: 70.76 kg

DRUGS (2)
  1. REMODULIN [Suspect]
     Indication: COR PULMONALE CHRONIC
     Dosage: 0.68 UG/KG, 1 IN 1 MIN
     Route: 041
     Dates: start: 20120413
  2. TRACLEER (BOSENTAN) [Concomitant]

REACTIONS (9)
  - Weight increased [None]
  - Oedema [None]
  - Diarrhoea [None]
  - Dyspepsia [None]
  - Fatigue [None]
  - Dyspnoea [None]
  - Malaise [None]
  - Hypotension [None]
  - Cyanosis [None]
